FAERS Safety Report 11137927 (Version 1)
Quarter: 2015Q2

REPORT INFORMATION
  Report Type: Spontaneous
  Country: US (occurrence: US)
  Receive Date: 20150526
  Receipt Date: 20150526
  Transmission Date: 20150821
  Serious: No
  Sender: FDA-Public Use
  Company Number: US-MALLINCKRODT-T201404571

PATIENT
  Age: 45 Year
  Sex: Female
  Weight: 49.89 kg

DRUGS (1)
  1. H.P. ACTHAR [Suspect]
     Active Substance: CORTICOTROPIN
     Indication: MULTIPLE SCLEROSIS
     Dosage: UNK, ONCE
     Route: 065

REACTIONS (5)
  - Pruritus [Recovered/Resolved]
  - Psychomotor hyperactivity [Unknown]
  - Balance disorder [Unknown]
  - Thirst [Unknown]
  - Insomnia [Unknown]

NARRATIVE: CASE EVENT DATE: 201412
